FAERS Safety Report 9221954 (Version 1)
Quarter: 2013Q2

REPORT INFORMATION
  Report Type: Spontaneous
  Country: US (occurrence: None)
  Receive Date: 20130408
  Receipt Date: 20130408
  Transmission Date: 20140414
  Serious: Yes (Hospitalization, Disabling, Other)
  Sender: FDA-Public Use
  Company Number: ACO_35173_2013

PATIENT
  Age: 58 Year
  Sex: Male
  Weight: 95.7 kg

DRUGS (14)
  1. AMPYRA (DALFAMPRIDINE) TABLET, 10 MG [Suspect]
     Indication: PRODUCT USED FOR UNKNOWN INDICATION
     Route: 048
  2. LYRICA (PREGABALIN) [Concomitant]
  3. FLEXERIL (CYCLOBENZAPRINE HYDROCHLORIDE) [Concomitant]
  4. BACLOFEN (BACLOFEN) (BACLOFEN) [Concomitant]
  5. MULTIVITAMIN (VITAMIN NOS) [Concomitant]
  6. VIAGRA (SILDENAFILCITRATE) [Concomitant]
  7. CALCIUM (CALCIUM) [Concomitant]
  8. ASPIRIN BUFFERED (ACETYLSALICYLIC ACID) [Concomitant]
  9. GABAPENTIN (GABAPENTIN) [Concomitant]
  10. CITALOPRAM (CITALOPRAM) [Concomitant]
  11. PROVIGIL (MODAFINIL) [Concomitant]
  12. SOTALOL AF (SOTALOL HYDROCHLORIDE) [Concomitant]
  13. SIMVASTATIN (SIMVASTATIN) [Concomitant]
  14. BUPROPION (BUPROPION) [Concomitant]

REACTIONS (3)
  - Pneumonia aspiration [None]
  - Movement disorder [None]
  - Dysphagia [None]
